FAERS Safety Report 4549956-7 (Version None)
Quarter: 2005Q1

REPORT INFORMATION
  Report Type: 
  Country: None (occurrence: None)
  Receive Date: 20050110
  Receipt Date: 20041228
  Transmission Date: 20050727
  Serious: Yes (Other)
  Sender: FDA-Public Use
  Company Number: 2004-BP-14485RO

PATIENT
  Age: 2 Year
  Sex: Female

DRUGS (2)
  1. FUROSEMIDE [Suspect]
     Dosage: 27.5 MG OVER 9 DAYS, THEN WEANED
  2. ANTIBIOTIC (ANTIBIOTICS) [Concomitant]

REACTIONS (8)
  - HYDRONEPHROSIS [None]
  - HYPERCALCIURIA [None]
  - JAUNDICE NEONATAL [None]
  - NEONATAL DISORDER [None]
  - NEPHROLITHIASIS [None]
  - PELVI-URETERIC OBSTRUCTION [None]
  - URETERAL DISORDER [None]
  - URINOMA [None]
